FAERS Safety Report 16969581 (Version 1)
Quarter: 2019Q4

REPORT INFORMATION
  Report Type: Spontaneous
  Country: CA (occurrence: CA)
  Receive Date: 20191029
  Receipt Date: 20191029
  Transmission Date: 20200122
  Serious: Yes (Other)
  Sender: FDA-Public Use
  Company Number: CA-PFIZER INC-2019462908

PATIENT
  Sex: Female

DRUGS (3)
  1. AZITHROMYCIN ANHYDROUS. [Suspect]
     Active Substance: AZITHROMYCIN ANHYDROUS
     Dosage: UNK
  2. MIRENA [Interacting]
     Active Substance: LEVONORGESTREL
     Dosage: UNK
     Route: 048
  3. ISOTRETINOIN. [Interacting]
     Active Substance: ISOTRETINOIN
     Dosage: UNK

REACTIONS (3)
  - Drug interaction [Unknown]
  - Maternal exposure during pregnancy [Unknown]
  - Bronchitis [Unknown]
